FAERS Safety Report 25739985 (Version 4)
Quarter: 2025Q4

REPORT INFORMATION
  Report Type: Spontaneous
  Country: EU (occurrence: EU)
  Receive Date: 20250829
  Receipt Date: 20251013
  Transmission Date: 20260118
  Serious: No
  Sender: TEVA
  Company Number: EU-SANDOZ-SDZ2025FR053145

PATIENT
  Age: 39 Year
  Sex: Male

DRUGS (6)
  1. BILASTINE [Suspect]
     Active Substance: BILASTINE
     Indication: Product used for unknown indication
     Dosage: 20 MG,1 AT NIGHT
     Route: 048
     Dates: start: 2021
  2. ERELZI [Suspect]
     Active Substance: ETANERCEPT-SZZS
     Indication: Polyarthritis
     Dosage: 50 MG, QW(1 INJECTION WITHIN 7 DAYS), ERELZI PEN, DOSAGE1: EXPDT=2027-07-31 DOSAGE2: EXPDT=2025-0...
     Route: 058
     Dates: start: 20250429, end: 202505
  3. ERELZI [Suspect]
     Active Substance: ETANERCEPT-SZZS
     Indication: Polyarthritis
     Dosage: 50 MG, QW, ERELZI PEN, SOLUTION FOR INJECTION IN PRE-FILLED PEN
     Route: 065
  4. MOMETASONE [Suspect]
     Active Substance: MOMETASONE
     Indication: Product used for unknown indication
     Dosage: 1 PER 50MG BINDER(2 TO 6 PER BINDER), INHALATION USE,MOMETASONE FUROATE
     Route: 065
  5. MONTELUKAST [Suspect]
     Active Substance: MONTELUKAST
     Indication: Product used for unknown indication
     Dosage: MONTELUKAST SODIUM
     Route: 048
  6. INNOVAIR [Suspect]
     Active Substance: BECLOMETHASONE DIPROPIONATE\FORMOTEROL
     Indication: Product used for unknown indication
     Dosage: 100 MG,2 PUFFS MORNING AND EVENING, INHALATION USE, RESPIRATORY (INHALATION)
     Route: 065
     Dates: start: 2017

REACTIONS (3)
  - Injection site haematoma [Unknown]
  - Product availability issue [Unknown]
  - Injection site pain [Unknown]
